FAERS Safety Report 15250996 (Version 4)
Quarter: 2018Q3

REPORT INFORMATION
  Report Type: Spontaneous
  Country: HN (occurrence: HN)
  Receive Date: 20180807
  Receipt Date: 20180911
  Transmission Date: 20181010
  Serious: Yes (Hospitalization, Other)
  Sender: FDA-Public Use
  Company Number: PHHY2018HN065179

PATIENT
  Age: 54 Year
  Sex: Male

DRUGS (3)
  1. PLAVIX [Concomitant]
     Active Substance: CLOPIDOGREL BISULFATE
     Indication: COAGULOPATHY
     Dosage: UNK
     Route: 065
  2. VYMADA [Suspect]
     Active Substance: SACUBITRIL\VALSARTAN
     Dosage: 200 MG, BID
     Route: 048
  3. VYMADA [Suspect]
     Active Substance: SACUBITRIL\VALSARTAN
     Indication: CARDIAC FAILURE
     Dosage: 50 MG, BID
     Route: 065

REACTIONS (12)
  - Blood urea increased [Unknown]
  - Deep vein thrombosis [Unknown]
  - Obesity [Unknown]
  - Influenza [Unknown]
  - Renal impairment [Unknown]
  - Blood creatinine increased [Unknown]
  - Platelet count decreased [Recovered/Resolved]
  - Proteinuria [Recovering/Resolving]
  - Sepsis [Recovered/Resolved]
  - Cardiac failure [Recovering/Resolving]
  - Pneumonia [Unknown]
  - Thrombocytopenia [Recovered/Resolved]
